FAERS Safety Report 19460866 (Version 1)
Quarter: 2021Q2

REPORT INFORMATION
  Report Type: Spontaneous
  Country: NL (occurrence: NL)
  Receive Date: 20210625
  Receipt Date: 20210625
  Transmission Date: 20210717
  Serious: Yes (Hospitalization)
  Sender: FDA-Public Use
  Company Number: NL-SUN PHARMACEUTICAL INDUSTRIES LTD-2021RR-302164

PATIENT
  Age: 60 Year
  Sex: Male
  Weight: 89 kg

DRUGS (3)
  1. ESOMEPRAZOLE. [Suspect]
     Active Substance: ESOMEPRAZOLE MAGNESIUM
     Indication: REGURGITATION
     Dosage: GASTRO?RESISTANT CAPSULE, 40 MG (MILLIGRAMS)
     Route: 065
     Dates: start: 2021
  2. ACETYLSALICYLZUUR TABLET  80MG / BRAND NAME NOT SPECIFIEDACETYLSALI... [Concomitant]
     Indication: PRODUCT USED FOR UNKNOWN INDICATION
     Dosage: TABLET, 80 MG (MILLIGRAM) ()
     Route: 065
  3. IRBESARTAN TABLET  75MG / IRBESARTAN TEVA TABLET FILMOMHULD  75MGIR... [Concomitant]
     Indication: PRODUCT USED FOR UNKNOWN INDICATION
     Dosage: UNK
     Route: 065

REACTIONS (1)
  - Pain in extremity [Not Recovered/Not Resolved]
